FAERS Safety Report 12339022 (Version 1)
Quarter: 2016Q2

REPORT INFORMATION
  Report Type: Not Available
  Country: US (occurrence: US)
  Receive Date: 20160505
  Receipt Date: 20160505
  Transmission Date: 20160815
  Serious: Yes (Life-Threatening)
  Sender: FDA-Public Use
  Company Number: US-ANIPHARMA-2016-US-003083

PATIENT
  Age: 63 Year
  Sex: Female

DRUGS (2)
  1. DULOXETINE. [Suspect]
     Active Substance: DULOXETINE
     Dosage: 40 MG DAILY
     Route: 065
  2. TRIAMTERENE AND HYDROCHLOROTHIAZIDE [Suspect]
     Active Substance: HYDROCHLOROTHIAZIDE\TRIAMTERENE
     Dosage: UNKNOWN
     Route: 065

REACTIONS (5)
  - Unresponsive to stimuli [Unknown]
  - Generalised tonic-clonic seizure [Unknown]
  - Inappropriate antidiuretic hormone secretion [Unknown]
  - Encephalopathy [Unknown]
  - Hyponatraemia [Unknown]
